FAERS Safety Report 15994697 (Version 2)
Quarter: 2019Q1

REPORT INFORMATION
  Report Type: Spontaneous
  Country: ES (occurrence: ES)
  Receive Date: 20190222
  Receipt Date: 20190303
  Transmission Date: 20190418
  Serious: Yes (Hospitalization, Other)
  Sender: FDA-Public Use
  Company Number: ES-CELLTRION INC.-2017ES011454

PATIENT

DRUGS (1)
  1. INFLIXIMAB (UNKNOWN) [Suspect]
     Active Substance: INFLIXIMAB
     Indication: CROHN^S DISEASE
     Dosage: UNK
     Route: 041

REACTIONS (10)
  - Cardiogenic shock [Recovered/Resolved]
  - Autonomic nervous system imbalance [Unknown]
  - Cardiac failure [Recovered/Resolved]
  - Acute myocardial infarction [Recovered/Resolved]
  - Myocarditis [Recovered/Resolved]
  - Haemodynamic instability [Recovered/Resolved]
  - Ventricular dysfunction [Recovered/Resolved]
  - Pericardial effusion [Recovered/Resolved]
  - Chest pain [Recovered/Resolved]
  - Pericarditis [Recovered/Resolved]
